FAERS Safety Report 5689499-0 (Version None)
Quarter: 2008Q1

REPORT INFORMATION
  Report Type: 
  Country: None (occurrence: None)
  Receive Date: 20080331
  Receipt Date: 20080319
  Transmission Date: 20080703
  Serious: Yes (Death, Hospitalization, Other)
  Sender: FDA-Public Use
  Company Number: US-PFIZER INC-2008025593

PATIENT
  Age: 49 Year
  Sex: Male

DRUGS (4)
  1. LYRICA [Suspect]
     Indication: NECK PAIN
  2. LYRICA [Suspect]
     Indication: BACK PAIN
  3. ANTI-ASTHMATICS [Concomitant]
  4. CHOLESTEROL- AND TRIGLYCERIDE REDUCERS [Concomitant]

REACTIONS (10)
  - BLOOD GLUCOSE DECREASED [None]
  - COMA [None]
  - DEATH [None]
  - DYSPNOEA [None]
  - LETHARGY [None]
  - PYREXIA [None]
  - RENAL FAILURE [None]
  - RHABDOMYOLYSIS [None]
  - SEPTIC SHOCK [None]
  - STUPOR [None]
